FAERS Safety Report 5768186-4 (Version None)
Quarter: 2008Q2

REPORT INFORMATION
  Report Type: 
  Country: None (occurrence: None)
  Receive Date: 20080612
  Receipt Date: 20080605
  Transmission Date: 20081010
  Serious: Yes (Hospitalization)
  Sender: FDA-Public Use
  Company Number: FR-AMGEN-UK247595

PATIENT
  Sex: Male

DRUGS (4)
  1. PANITUMUMAB [Suspect]
     Indication: COLORECTAL CANCER
     Route: 042
     Dates: start: 20061113
  2. IRINOTECAN HCL [Concomitant]
     Route: 041
     Dates: start: 20061113, end: 20070530
  3. LEUCOVORIN CALCIUM [Concomitant]
     Route: 041
     Dates: start: 20061113, end: 20070530
  4. FLUOROURACIL [Concomitant]
     Route: 041
     Dates: start: 20061113, end: 20070530

REACTIONS (1)
  - SUBILEUS [None]
